FAERS Safety Report 7819416-6 (Version None)
Quarter: 2011Q4

REPORT INFORMATION
  Report Type: 
  Country: None (occurrence: None)
  Receive Date: 20111018
  Receipt Date: 20101029
  Transmission Date: 20120403
  Serious: No
  Sender: FDA-Public Use
  Company Number: US-ASTRAZENECA-2010SE51399

PATIENT
  Age: 84 Year
  Sex: Male
  Weight: 83.9 kg

DRUGS (6)
  1. VITAMIN TAB [Concomitant]
  2. LUMIGAN [Concomitant]
  3. FINASTERIDE [Concomitant]
  4. ZANTAC [Concomitant]
  5. SYMBICORT [Suspect]
     Indication: CHRONIC OBSTRUCTIVE PULMONARY DISEASE
     Dosage: 160/4.5, TWO PUFFS DAILY
     Route: 055
     Dates: start: 20100101
  6. LOVASTATIN [Concomitant]

REACTIONS (2)
  - DYSPNOEA [None]
  - INCORRECT DOSE ADMINISTERED [None]
